FAERS Safety Report 4494281-6 (Version None)
Quarter: 2004Q4

REPORT INFORMATION
  Report Type: 
  Country: None (occurrence: None)
  Receive Date: 20041102
  Receipt Date: 20041019
  Transmission Date: 20050328
  Serious: Yes (Other)
  Sender: FDA-Public Use
  Company Number: USA041081754

PATIENT
  Age: 39 Year
  Sex: Female
  Weight: 64 kg

DRUGS (2)
  1. PROZAC [Suspect]
     Indication: ANXIETY
     Dosage: 40 MG DAY
     Dates: end: 20040601
  2. PROZAC [Suspect]
     Indication: DEPRESSION
     Dosage: 40 MG DAY
     Dates: end: 20040601

REACTIONS (11)
  - ACQUIRED IMMUNODEFICIENCY SYNDROME [None]
  - CHRONIC FATIGUE SYNDROME [None]
  - ECZEMA [None]
  - ERYTHEMA [None]
  - MITRAL VALVE PROLAPSE [None]
  - PHOTOPHOBIA [None]
  - PHOTOSENSITIVITY REACTION [None]
  - RASH [None]
  - SCAB [None]
  - SKIN DESQUAMATION [None]
  - VISION BLURRED [None]
